FAERS Safety Report 15510064 (Version 1)
Quarter: 2018Q4

REPORT INFORMATION
  Report Type: Spontaneous
  Country: US (occurrence: US)
  Receive Date: 20181010
  Receipt Date: 20181010
  Transmission Date: 20190205
  Serious: No
  Sender: FDA-Public Use
  Company Number: None

PATIENT
  Age: 59 Year
  Sex: Female
  Weight: 52.16 kg

DRUGS (2)
  1. ACTEMRA [Suspect]
     Active Substance: TOCILIZUMAB
     Indication: PATHOLOGICAL FRACTURE
     Dosage: ?          OTHER DOSE:162 / 0.9 MG/ML;OTHER FREQUENCY:EVERY TWO WEEKS;?
     Route: 058
     Dates: start: 201802
  2. ACTEMRA [Suspect]
     Active Substance: TOCILIZUMAB
     Indication: RHEUMATOID ARTHRITIS
     Dosage: ?          OTHER DOSE:162 / 0.9 MG/ML;OTHER FREQUENCY:EVERY TWO WEEKS;?
     Route: 058
     Dates: start: 201802

REACTIONS (3)
  - Skeletal injury [None]
  - Contusion [None]
  - Fall [None]
